FAERS Safety Report 7601646-X (Version None)
Quarter: 2011Q3

REPORT INFORMATION
  Report Type: 
  Country: None (occurrence: None)
  Receive Date: 20110711
  Receipt Date: 20110707
  Transmission Date: 20111222
  Serious: Yes (Hospitalization)
  Sender: FDA-Public Use
  Company Number: US-BRISTOL-MYERS SQUIBB COMPANY-15890155

PATIENT
  Age: 59 Year
  Sex: Male
  Weight: 64 kg

DRUGS (3)
  1. CETUXIMAB [Suspect]
     Indication: NON-SMALL CELL LUNG CANCER
     Dosage: INFUSIONS TAKEN:03MAR11,16JUN11
     Route: 042
     Dates: start: 20110303, end: 20110616
  2. PACLITAXEL [Suspect]
     Indication: NON-SMALL CELL LUNG CANCER
     Dosage: INFUSIONS TAKEN:03MAR11,02JUN11
     Route: 042
     Dates: start: 20110303, end: 20110602
  3. CARBOPLATIN [Suspect]
     Indication: NON-SMALL CELL LUNG CANCER
     Dosage: 1ST INFUSION:03MAR11 5TH INFUSION 02JUN11
     Route: 042
     Dates: start: 20110303, end: 20110602

REACTIONS (2)
  - HYPOKALAEMIA [None]
  - DEHYDRATION [None]
